FAERS Safety Report 8419097-7 (Version None)
Quarter: 2012Q2

REPORT INFORMATION
  Report Type: 
  Country: None (occurrence: None)
  Receive Date: 20120607
  Receipt Date: 20120605
  Transmission Date: 20120825
  Serious: Yes (Other)
  Sender: FDA-Public Use
  Company Number: PHEH2012US010088

PATIENT
  Sex: Male

DRUGS (1)
  1. ZOMETA [Suspect]
     Indication: PROSTATE CANCER
     Dosage: UNK UKN, UNK
     Route: 042
     Dates: start: 20110114

REACTIONS (5)
  - EAR DISCOMFORT [None]
  - HEADACHE [None]
  - DEAFNESS [None]
  - BURNING SENSATION [None]
  - CRYING [None]
